FAERS Safety Report 6335773-4 (Version None)
Quarter: 2009Q3

REPORT INFORMATION
  Report Type: 
  Country: None (occurrence: None)
  Receive Date: 20090828
  Receipt Date: 20090814
  Transmission Date: 20100115
  Serious: Yes (Hospitalization)
  Sender: FDA-Public Use
  Company Number: 2009SP001743

PATIENT
  Age: 58 Year
  Sex: Female
  Weight: 68.1 kg

DRUGS (5)
  1. XOPENEX [Suspect]
     Indication: ASTHMA
     Dosage: 0.63 MG/3ML; PRN; INHALATION
     Route: 055
     Dates: start: 20090527, end: 20090528
  2. XOPENEX [Suspect]
     Indication: DYSPNOEA
     Dosage: 0.63 MG/3ML; PRN; INHALATION
     Route: 055
     Dates: start: 20090527, end: 20090528
  3. ASPIRIN [Concomitant]
  4. MOTRIN [Concomitant]
  5. INDOCIN [Concomitant]

REACTIONS (5)
  - ASTHMA [None]
  - ATELECTASIS [None]
  - BRONCHOSPASM [None]
  - FLUID OVERLOAD [None]
  - RESPIRATORY DISTRESS [None]
